FAERS Safety Report 15587772 (Version 2)
Quarter: 2018Q4

REPORT INFORMATION
  Report Type: Spontaneous
  Country: FR (occurrence: FR)
  Receive Date: 20181105
  Receipt Date: 20181114
  Transmission Date: 20190205
  Serious: Yes (Death, Hospitalization, Other)
  Sender: FDA-Public Use
  Company Number: FR-009507513-1810FRA013092

PATIENT
  Age: 61 Year
  Sex: Male
  Weight: 82 kg

DRUGS (10)
  1. POLARAMINE [Concomitant]
     Active Substance: DEXCHLORPHENIRAMINE MALEATE
     Indication: ANTIALLERGIC THERAPY
     Dosage: 2 MILLIGRAM
     Dates: end: 20171009
  2. VIRAFERONPEG [Suspect]
     Active Substance: PEGINTERFERON ALFA-2B
     Indication: HEPATITIS C
     Dosage: 80 MICROGRAM, ONCE PER WEEK (QW)
     Dates: start: 20100121, end: 20100428
  3. DAKLINZA [Suspect]
     Active Substance: DACLATASVIR
     Indication: HEPATITIS C
     Dosage: 60 MILLIGRAM, ONCE DAILY (QD)
     Dates: start: 20150110, end: 20150626
  4. PEGASYS [Suspect]
     Active Substance: PEGINTERFERON ALFA-2A
     Indication: HEPATITIS C
     Dosage: 180 MILLIGRAM, ONCE PER WEEK (QW)
     Dates: start: 20070906, end: 20080807
  5. COPEGUS [Suspect]
     Active Substance: RIBAVIRIN
     Indication: HEPATITIS C
     Dosage: 200 MILLIGRAM, 4 TIMES DAILY (QID)
     Dates: start: 20070906, end: 20080807
  6. PROPRANOLOL HYDROCHLORIDE. [Concomitant]
     Active Substance: PROPRANOLOL HYDROCHLORIDE
     Indication: ISCHAEMIC HEART DISEASE PROPHYLAXIS
     Dosage: 160 MILLIGRAM
     Dates: end: 20171009
  7. ALDACTONE [Concomitant]
     Active Substance: SPIRONOLACTONE
     Indication: DIURETIC THERAPY
     Dosage: 25 MILLIGRAM, ONCE DAILY (QD)
     Dates: start: 201204, end: 20171009
  8. REBETOL [Suspect]
     Active Substance: RIBAVIRIN
     Indication: HEPATITIS C
     Dosage: 200 MILLIGRAM, 4 TIMES DAILY (QID)
     Dates: start: 20100121, end: 20100428
  9. SOVALDI [Suspect]
     Active Substance: SOFOSBUVIR
     Indication: HEPATITIS C
     Dosage: 400 MILLIGRAM, DAILY (QD)
     Dates: start: 20150110, end: 20150626
  10. URSODIOL. [Concomitant]
     Active Substance: URSODIOL
     Dosage: 250 MILLIGRAM
     Dates: end: 20171009

REACTIONS (2)
  - Hepatocellular carcinoma [Fatal]
  - Hepatic encephalopathy [Not Recovered/Not Resolved]

NARRATIVE: CASE EVENT DATE: 20170509
